FAERS Safety Report 17836291 (Version 1)
Quarter: 2020Q2

REPORT INFORMATION
  Report Type: Report from Study
  Country: JP (occurrence: JP)
  Receive Date: 20200529
  Receipt Date: 20200529
  Transmission Date: 20200714
  Serious: Yes (Hospitalization, Other)
  Sender: FDA-Public Use
  Company Number: JP-AMGEN-JPNNI2020082595

PATIENT
  Age: 72 Year
  Sex: Female
  Weight: 50 kg

DRUGS (14)
  1. NEXIUM [Concomitant]
     Active Substance: ESOMEPRAZOLE MAGNESIUM
     Route: 048
  2. ETANERCEPT [Suspect]
     Active Substance: ETANERCEPT
     Indication: PRODUCT USED FOR UNKNOWN INDICATION
     Dosage: UNK  *SINGLE
     Route: 065
     Dates: start: 20160614
  3. URSODEOXYCHOLIC ACID [Concomitant]
     Active Substance: URSODIOL
     Dosage: UNK
     Route: 048
     Dates: start: 20131115
  4. AMITIZA [Concomitant]
     Active Substance: LUBIPROSTONE
     Route: 048
  5. CALONAL [Concomitant]
     Active Substance: ACETAMINOPHEN
     Dosage: UNK
     Dates: start: 20131125
  6. AMLODIPINE [Concomitant]
     Active Substance: AMLODIPINE BESYLATE
     Indication: HYPERTENSION
     Dosage: UNK
     Route: 048
     Dates: end: 20180330
  7. XELJANZ [Suspect]
     Active Substance: TOFACITINIB CITRATE
     Indication: RHEUMATOID ARTHRITIS
     Dosage: 5 MG, 2X/DAY
     Route: 048
     Dates: start: 20170920
  8. VOLTAREN ACTIGO [DICLOFENAC SODIUM] [Concomitant]
     Active Substance: DICLOFENAC SODIUM
  9. BENAMBAX [Concomitant]
     Active Substance: PENTAMIDINE
     Indication: ANTIFUNGAL PROPHYLAXIS
  10. MAGNESIUM OXIDE. [Concomitant]
     Active Substance: MAGNESIUM OXIDE
     Route: 048
  11. WARFARIN [Concomitant]
     Active Substance: WARFARIN
     Route: 048
  12. RHEUMATREX [Suspect]
     Active Substance: METHOTREXATE SODIUM
     Indication: PRODUCT USED FOR UNKNOWN INDICATION
     Dosage: UNK
     Route: 065
     Dates: start: 20130621, end: 20160527
  13. ALDACTONE A [Concomitant]
     Active Substance: SPIRONOLACTONE
     Route: 048
  14. AZUNOL GARGLE LIQUID [Concomitant]

REACTIONS (2)
  - Colon adenoma [Recovering/Resolving]
  - Colon cancer [Recovering/Resolving]

NARRATIVE: CASE EVENT DATE: 20190529
